FAERS Safety Report 6197980-3 (Version None)
Quarter: 2009Q2

REPORT INFORMATION
  Report Type: 
  Country: None (occurrence: None)
  Receive Date: 20090521
  Receipt Date: 20090515
  Transmission Date: 20091009
  Serious: Yes (Other)
  Sender: FDA-Public Use
  Company Number: US-JNJFOC-20090504210

PATIENT
  Age: 61 Year
  Sex: Female
  Weight: 77.11 kg

DRUGS (2)
  1. IMODIUM A-D [Suspect]
     Route: 048
  2. IMODIUM A-D [Suspect]
     Indication: DIARRHOEA
     Route: 048

REACTIONS (2)
  - ASTHENIA [None]
  - RECTAL HAEMORRHAGE [None]
